FAERS Safety Report 4651871-5 (Version None)
Quarter: 2005Q2

REPORT INFORMATION
  Report Type: 
  Country: None (occurrence: None)
  Receive Date: 20050504
  Receipt Date: 20041203
  Transmission Date: 20051028
  Serious: Yes (Other)
  Sender: FDA-Public Use
  Company Number: GB-GLAXOSMITHKLINE-B0360773A

PATIENT
  Sex: Male

DRUGS (3)
  1. PAROXETINE HYDROCHLORIDE [Suspect]
     Route: 065
     Dates: start: 19990101
  2. CIPRAMIL [Concomitant]
     Dates: start: 20021101
  3. ZOPICLONE [Concomitant]
     Dates: start: 20021101

REACTIONS (8)
  - ANGER [None]
  - ANXIETY [None]
  - ILL-DEFINED DISORDER [None]
  - INSOMNIA [None]
  - IRRITABILITY [None]
  - PANIC ATTACK [None]
  - STRESS [None]
  - SUICIDAL IDEATION [None]
